FAERS Safety Report 5800966-9 (Version None)
Quarter: 2008Q3

REPORT INFORMATION
  Report Type: 
  Country: None (occurrence: None)
  Receive Date: 20080702
  Receipt Date: 20080618
  Transmission Date: 20090109
  Serious: Yes (Death, Hospitalization)
  Sender: FDA-Public Use
  Company Number: 2008AL007314

PATIENT
  Age: 80 Year
  Sex: Male

DRUGS (5)
  1. DIGOXIN [Suspect]
     Indication: ATRIAL FIBRILLATION
     Dosage: 0.25 MG DAILY PO
     Route: 048
  2. PLAVIX [Concomitant]
  3. TOPROL-XL [Concomitant]
  4. GLUCOTROL [Concomitant]
  5. FUROSEMIDE [Concomitant]

REACTIONS (6)
  - ACUTE HEPATIC FAILURE [None]
  - CARDIAC FAILURE CONGESTIVE [None]
  - HYPOTENSION [None]
  - OVERDOSE [None]
  - RENAL DISORDER [None]
  - RENAL FAILURE [None]
